FAERS Safety Report 24667084 (Version 2)
Quarter: 2024Q4

REPORT INFORMATION
  Report Type: Spontaneous
  Country: CN (occurrence: CN)
  Receive Date: 20241126
  Receipt Date: 20241209
  Transmission Date: 20250115
  Serious: Yes (Other)
  Sender: NOVARTIS
  Company Number: CN-002147023-NVSC2024CN226276

PATIENT
  Age: 78 Year
  Sex: Female

DRUGS (1)
  1. DIOVAN [Suspect]
     Active Substance: VALSARTAN
     Indication: Product used for unknown indication
     Dosage: UNK (4X7)
     Route: 065

REACTIONS (3)
  - Blood pressure systolic increased [Recovering/Resolving]
  - Drug ineffective [Unknown]
  - Drug resistance [Unknown]
